FAERS Safety Report 19867011 (Version 3)
Quarter: 2022Q2

REPORT INFORMATION
  Report Type: Spontaneous
  Country: CN (occurrence: None)
  Receive Date: 20210922
  Receipt Date: 20220401
  Transmission Date: 20220720
  Serious: Yes (Other)
  Sender: FDA-Public Use
  Company Number: CN-ROCHE-2913571

PATIENT
  Age: 75 Year
  Sex: Female

DRUGS (23)
  1. MABTHERA [Suspect]
     Active Substance: RITUXIMAB
     Indication: Marginal zone lymphoma
     Dosage: ON 03/JUN/2013, 30/JUN/2013, 29/JUL/2013 AND 03/SEP/2013, ON DAY 0
     Route: 065
  2. MABTHERA [Suspect]
     Active Substance: RITUXIMAB
     Dosage: ON DAY 1
     Route: 065
     Dates: start: 20131001
  3. MABTHERA [Suspect]
     Active Substance: RITUXIMAB
     Dosage: ON 03/DEC/2013 AND 20/FEB/2014
     Route: 065
  4. MABTHERA [Suspect]
     Active Substance: RITUXIMAB
     Dosage: ON 30/DEC/2019, 01/FEB/2020 AND 04/APR/2020, ON DAY 0
     Route: 065
  5. GAZYVA [Suspect]
     Active Substance: OBINUTUZUMAB
     Indication: Marginal zone lymphoma
     Dosage: ON DAY 1 AND DAY 8
     Route: 042
     Dates: start: 20210827
  6. CYCLOPHOSPHAMIDE [Concomitant]
     Active Substance: CYCLOPHOSPHAMIDE
     Dosage: ON 03 JUN 2013, 30 JUN 2013, 29 JUL 2013 AND 03 SEP 2013, ON DAY 1
  7. CYCLOPHOSPHAMIDE [Concomitant]
     Active Substance: CYCLOPHOSPHAMIDE
     Dosage: ON 30 DEC 2019, 01 FEB 2020 AND 04 APR 2020, ON DAY 1
  8. DOXORUBICIN HYDROCHLORIDE [Concomitant]
     Active Substance: DOXORUBICIN HYDROCHLORIDE
     Dosage: ON 03 JUN 2013, 30 JUN 2013, 29 JUL 2013 AND 03 SEP 2013, ON DAY 1
  9. DOXORUBICIN HYDROCHLORIDE [Concomitant]
     Active Substance: DOXORUBICIN HYDROCHLORIDE
     Dosage: ON 30 DEC 2019, 01 FEB 2020 AND 04 APR 2020, ON DAY 1
  10. VINDESINE [Concomitant]
     Active Substance: VINDESINE
     Dosage: ON 03 JUN 2013, 30 JUN 2013, 29 JUL 2013 AND 03 SEP 2013, ON DAY 1
  11. PREDNISONE ACETATE [Concomitant]
     Active Substance: PREDNISONE ACETATE
     Dosage: ON 03 JUN 2013, 30 JUN 2013, 29 JUL 2013 AND 03 SEP 2013, ON DAY 1-5
  12. PREDNISONE ACETATE [Concomitant]
     Active Substance: PREDNISONE ACETATE
  13. CHLORAMBUCIL [Concomitant]
     Active Substance: CHLORAMBUCIL
     Dates: start: 20131001
  14. VINCRISTINE [Concomitant]
     Active Substance: VINCRISTINE
     Dosage: ON 30 DEC 2019, 01 FEB 2020 AND 04 APR 2020, ON DAY 1
  15. DEXAMETHASONE [Concomitant]
     Active Substance: DEXAMETHASONE
     Dosage: ON 30 DEC 2019, 01 FEB 2020 AND 04 APR 2020, ON DAY 1-5
     Dates: start: 2019
  16. DEXAMETHASONE [Concomitant]
     Active Substance: DEXAMETHASONE
     Dosage: ON 30 DEC 2019, 01 FEB 2020 AND 04 APR 2020, ON DAY 1-5
  17. DEXAMETHASONE [Concomitant]
     Active Substance: DEXAMETHASONE
     Dates: start: 202108
  18. ERTAPENEM [Concomitant]
     Active Substance: ERTAPENEM
     Indication: Pneumonia
     Dates: start: 2021
  19. FLUCONAZOLE [Concomitant]
     Active Substance: FLUCONAZOLE
     Indication: Pneumonia
     Dates: start: 2021
  20. BENDAMUSTINE [Concomitant]
     Active Substance: BENDAMUSTINE
     Dosage: ON DAY 2-3
     Dates: start: 20210827
  21. HERBALS\DIAMMONIUM GLYCYRRHIZINATE [Concomitant]
     Active Substance: HERBALS\DIAMMONIUM GLYCYRRHIZINATE
     Dates: start: 2021
  22. TUCIDINOSTAT [Concomitant]
     Active Substance: TUCIDINOSTAT
     Route: 048
     Dates: start: 20220303
  23. LENALIDOMIDE [Concomitant]
     Active Substance: LENALIDOMIDE
     Dates: start: 20220303

REACTIONS (8)
  - Haemophagocytic lymphohistiocytosis [Unknown]
  - Myelosuppression [Recovered/Resolved]
  - Bone pain [Unknown]
  - Neoplasm recurrence [Unknown]
  - Off label use [Unknown]
  - Infusion related reaction [Unknown]
  - Pyrexia [Unknown]
  - Pneumonia [Unknown]

NARRATIVE: CASE EVENT DATE: 20191101
